FAERS Safety Report 8909581 (Version 2)
Quarter: 2012Q4

REPORT INFORMATION
  Report Type: 
  Country: US (occurrence: US)
  Receive Date: 20121115
  Receipt Date: 20121204
  Transmission Date: 20130627
  Serious: No
  Sender: FDA-Public Use
  Company Number: US-TEVA-370293USA

PATIENT
  Sex: Female
  Weight: 68.1 kg

DRUGS (2)
  1. PLAN B ONE-STEP [Suspect]
     Indication: POST COITAL CONTRACEPTION
     Dosage: 1.5 Milligram Daily;
     Route: 048
     Dates: start: 20120405, end: 20120405
  2. SYNTHROID [Concomitant]
     Indication: HYPOTHYROIDISM
     Dates: start: 201203

REACTIONS (13)
  - Migraine [Recovered/Resolved]
  - Abdominal distension [Recovered/Resolved]
  - Vision blurred [Recovered/Resolved]
  - Pollakiuria [Recovered/Resolved]
  - Depression [Recovered/Resolved]
  - Cystitis [Recovered/Resolved]
  - Vitamin D decreased [Recovered/Resolved]
  - Nausea [Recovered/Resolved]
  - Dizziness [Recovered/Resolved]
  - Menstruation delayed [Recovered/Resolved]
  - Menstruation irregular [Recovered/Resolved]
  - Breast tenderness [Recovered/Resolved]
  - Headache [Recovered/Resolved]
